FAERS Safety Report 10818154 (Version 1)
Quarter: 2015Q1

REPORT INFORMATION
  Report Type: Spontaneous
  Country: US (occurrence: US)
  Receive Date: 20150218
  Receipt Date: 20150218
  Transmission Date: 20150721
  Serious: No
  Sender: FDA-Public Use
  Company Number: US-GILEAD-2015-0137708

PATIENT
  Age: 73 Year
  Sex: Female

DRUGS (9)
  1. TRAMADOL [Concomitant]
     Active Substance: TRAMADOL
  2. KLOR-CON [Concomitant]
     Active Substance: POTASSIUM CHLORIDE
  3. LIPITOR [Concomitant]
     Active Substance: ATORVASTATIN CALCIUM
  4. LASIX [Concomitant]
     Active Substance: FUROSEMIDE
  5. CATAPRES                           /00171101/ [Concomitant]
     Active Substance: CLONIDINE
  6. TOPROL XL [Concomitant]
     Active Substance: METOPROLOL SUCCINATE
  7. LETAIRIS [Suspect]
     Active Substance: AMBRISENTAN
     Indication: COR PULMONALE CHRONIC
     Dosage: 5 MG, QD
     Route: 065
     Dates: start: 20150122
  8. WARFARIN [Concomitant]
     Active Substance: WARFARIN
  9. ALLOPURINOL. [Concomitant]
     Active Substance: ALLOPURINOL

REACTIONS (1)
  - Joint swelling [Unknown]

NARRATIVE: CASE EVENT DATE: 20150130
